FAERS Safety Report 21733685 (Version 1)
Quarter: 2022Q4

REPORT INFORMATION
  Report Type: Spontaneous
  Country: US (occurrence: None)
  Receive Date: 20221214
  Receipt Date: 20221214
  Transmission Date: 20230113
  Serious: No
  Sender: FDA-Public Use
  Company Number: None

PATIENT
  Sex: Female

DRUGS (1)
  1. TREPROSTINIL [Suspect]
     Active Substance: TREPROSTINIL
     Indication: Pulmonary arterial hypertension
     Dosage: OTHER FREQUENCY : CONTINUOUS;?
     Route: 042
     Dates: start: 20221030

REACTIONS (6)
  - Infusion site pain [None]
  - Infusion site pruritus [None]
  - Swelling [None]
  - Fluid retention [None]
  - Dizziness [None]
  - Drug titration error [None]
